FAERS Safety Report 25768102 (Version 1)
Quarter: 2025Q3

REPORT INFORMATION
  Report Type: Spontaneous
  Country: US (occurrence: US)
  Receive Date: 20250905
  Receipt Date: 20250905
  Transmission Date: 20251020
  Serious: No
  Sender: DOMPE FARMACEUTICI
  Company Number: US-FARMAPROD-202505-1772

PATIENT
  Sex: Male

DRUGS (5)
  1. OXERVATE [Suspect]
     Active Substance: CENEGERMIN-BKBJ
     Indication: Neurotrophic keratopathy
     Route: 047
     Dates: start: 20250515
  2. OXERVATE [Suspect]
     Active Substance: CENEGERMIN-BKBJ
     Indication: Keratitis
  3. DORZOLAMIDE\TIMOLOL [Concomitant]
     Active Substance: DORZOLAMIDE\TIMOLOL
  4. MOXIFLOXACIN [Concomitant]
     Active Substance: MOXIFLOXACIN
  5. CEQUA [Concomitant]
     Active Substance: CYCLOSPORINE

REACTIONS (7)
  - Product dose omission issue [Unknown]
  - Eye pain [Not Recovered/Not Resolved]
  - Lacrimation increased [Unknown]
  - Eye irritation [Unknown]
  - Off label use [Unknown]
  - Photophobia [Unknown]
  - Ocular discomfort [Unknown]
